FAERS Safety Report 13071259 (Version 1)
Quarter: 2016Q4

REPORT INFORMATION
  Report Type: Spontaneous
  Country: US (occurrence: US)
  Receive Date: 20161229
  Receipt Date: 20161229
  Transmission Date: 20170207
  Serious: No
  Sender: FDA-Public Use
  Company Number: US-ASTRAZENECA-2016SF35500

PATIENT
  Age: 27174 Day
  Sex: Male
  Weight: 86.2 kg

DRUGS (7)
  1. CELEBREX [Concomitant]
     Active Substance: CELECOXIB
     Indication: ANTIINFLAMMATORY THERAPY
     Route: 048
  2. MULTI VITAMIN [Concomitant]
     Active Substance: VITAMINS
     Indication: ILL-DEFINED DISORDER
     Route: 048
  3. VITAMIN E [Concomitant]
     Active Substance: .ALPHA.-TOCOPHEROL
     Indication: VITAMIN SUPPLEMENTATION
     Route: 048
  4. METHADONE [Concomitant]
     Active Substance: METHADONE HYDROCHLORIDE
  5. MOVANTIK [Suspect]
     Active Substance: NALOXEGOL OXALATE
     Indication: CONSTIPATION
     Route: 048
     Dates: start: 20160527, end: 20160625
  6. VITAMIN  D 3 [Concomitant]
     Indication: VITAMIN SUPPLEMENTATION
     Dosage: 4000, DAILY
     Route: 048
  7. METHADONE [Concomitant]
     Active Substance: METHADONE HYDROCHLORIDE

REACTIONS (5)
  - Bowel movement irregularity [Unknown]
  - Drug ineffective [Unknown]
  - Emotional distress [Unknown]
  - Circumstance or information capable of leading to medication error [Unknown]
  - Constipation [Unknown]

NARRATIVE: CASE EVENT DATE: 20161123
